FAERS Safety Report 11211547 (Version 1)
Quarter: 2015Q2

REPORT INFORMATION
  Report Type: Spontaneous
  Country: DE (occurrence: DE)
  Receive Date: 20150623
  Receipt Date: 20150623
  Transmission Date: 20150821
  Serious: Yes (Death, Life-Threatening)
  Sender: FDA-Public Use
  Company Number: DE-BAYER-2015-351219

PATIENT
  Age: 34 Year
  Sex: Male
  Weight: 105 kg

DRUGS (1)
  1. AVALOX [Suspect]
     Active Substance: MOXIFLOXACIN HYDROCHLORIDE
     Indication: PNEUMONIA
     Dosage: 300 MG, 1 DAY
     Route: 042
     Dates: start: 20150518, end: 20150522

REACTIONS (2)
  - Cardiac death [Fatal]
  - Arrhythmia [Fatal]

NARRATIVE: CASE EVENT DATE: 20150522
